FAERS Safety Report 8965757 (Version 1)
Quarter: 2012Q4

REPORT INFORMATION
  Report Type: Spontaneous
  Country: US (occurrence: None)
  Receive Date: 20121206
  Receipt Date: 20121206
  Transmission Date: 20130627
  Serious: Yes (Hospitalization)
  Sender: FDA-Public Use
  Company Number: 2012110113

PATIENT
  Age: 54 Year
  Sex: Female

DRUGS (2)
  1. ESTRADIOL [Suspect]
     Indication: HORMONE REPLACEMENT THERAPY
  2. BISACODYL [Suspect]
     Indication: CONSTIPATION
     Dosage: (3 Tablet)
     Route: 048

REACTIONS (6)
  - Bowel movement irregularity [None]
  - Abdominal pain [None]
  - Diarrhoea [None]
  - Haematochezia [None]
  - Gastrointestinal necrosis [None]
  - Colitis ischaemic [None]
